FAERS Safety Report 24665259 (Version 1)
Quarter: 2024Q4

REPORT INFORMATION
  Report Type: Spontaneous
  Country: FR (occurrence: FR)
  Receive Date: 20241126
  Receipt Date: 20241126
  Transmission Date: 20250114
  Serious: Yes (Life-Threatening)
  Sender: ACCORD
  Company Number: None

PATIENT
  Age: 68 Year
  Sex: Male
  Weight: 60 kg

DRUGS (2)
  1. METHOTREXATE [Suspect]
     Active Substance: METHOTREXATE
     Indication: Cutaneous T-cell lymphoma
     Dosage: 17.5 MG SC PER WEEK
     Dates: start: 202401, end: 202408
  2. MOGAMULIZUMAB [Suspect]
     Active Substance: MOGAMULIZUMAB
     Indication: Cutaneous T-cell lymphoma
     Dosage: 1 MG/KG OR 63 MG/WEEK
     Dates: start: 20240904, end: 20240920

REACTIONS (1)
  - Interstitial lung disease [Not Recovered/Not Resolved]

NARRATIVE: CASE EVENT DATE: 20240914
